FAERS Safety Report 5231783-9 (Version None)
Quarter: 2007Q1

REPORT INFORMATION
  Report Type: 
  Country: None (occurrence: None)
  Receive Date: 20070206
  Receipt Date: 20070125
  Transmission Date: 20070707
  Serious: Yes (Other)
  Sender: FDA-Public Use
  Company Number: US-PFIZER INC-2007008329

PATIENT
  Sex: Female
  Weight: 59.9 kg

DRUGS (6)
  1. CHANTIX [Suspect]
  2. CARBOPLATIN [Concomitant]
  3. ALL OTHER THERAPEUTIC PRODUCTS [Concomitant]
  4. ATIVAN [Concomitant]
  5. RESTORIL [Concomitant]
  6. REMERON [Concomitant]

REACTIONS (2)
  - COORDINATION ABNORMAL [None]
  - PSYCHOMOTOR SKILLS IMPAIRED [None]
